FAERS Safety Report 12933389 (Version 1)
Quarter: 2016Q4

REPORT INFORMATION
  Report Type: Spontaneous
  Country: US (occurrence: US)
  Receive Date: 20161111
  Receipt Date: 20161111
  Transmission Date: 20170207
  Serious: Yes (Other)
  Sender: FDA-Public Use
  Company Number: US-AMGEN-USASP2016156513

PATIENT
  Age: 64 Year
  Sex: Female

DRUGS (4)
  1. XGEVA [Suspect]
     Active Substance: DENOSUMAB
     Indication: BONE DISORDER
     Dosage: UNK UNK, QMO
     Route: 065
     Dates: start: 201607
  2. FEMARA [Concomitant]
     Active Substance: LETROZOLE
     Indication: INVASIVE DUCTAL BREAST CARCINOMA
     Dosage: UNK
     Dates: start: 20160205
  3. AC [Concomitant]
     Indication: INVASIVE DUCTAL BREAST CARCINOMA
     Dosage: UNK
     Dates: start: 20151104
  4. IBRANCE [Concomitant]
     Active Substance: PALBOCICLIB
     Indication: INVASIVE DUCTAL BREAST CARCINOMA
     Dosage: UNK
     Dates: start: 20160205

REACTIONS (5)
  - Inflammation [Unknown]
  - Fatigue [Unknown]
  - Tumour flare [Unknown]
  - Lipoma [Unknown]
  - Asthenia [Unknown]
